FAERS Safety Report 5086496-3 (Version None)
Quarter: 2006Q3

REPORT INFORMATION
  Report Type: 
  Country: None (occurrence: None)
  Receive Date: 20060818
  Receipt Date: 20060803
  Transmission Date: 20061208
  Serious: Yes (Other)
  Sender: FDA-Public Use
  Company Number: 2006-DE-04105GD

PATIENT
  Age: 37 Year
  Sex: Male

DRUGS (1)
  1. CODEINE (CODEINE) [Suspect]
     Indication: CLUSTER HEADACHE

REACTIONS (2)
  - HEADACHE [None]
  - INCORRECT DOSE ADMINISTERED [None]
